FAERS Safety Report 10731135 (Version 1)
Quarter: 2015Q1

REPORT INFORMATION
  Report Type: Spontaneous
  Country: GB (occurrence: GB)
  Receive Date: 20150122
  Receipt Date: 20150122
  Transmission Date: 20150721
  Serious: Yes (Life-Threatening, Hospitalization, Disabling, Other)
  Sender: FDA-Public Use
  Company Number: PHHY2015GB007616

PATIENT
  Age: 15 Year
  Sex: Female
  Weight: 65 kg

DRUGS (2)
  1. MEPACT [Suspect]
     Active Substance: MIFAMURTIDE
     Indication: OSTEOSARCOMA
     Dosage: 3.52 MG, UNK
     Route: 042
     Dates: start: 20140602, end: 20140606
  2. METHOTREXATE [Suspect]
     Active Substance: METHOTREXATE
     Indication: PRODUCT USED FOR UNKNOWN INDICATION
     Dosage: UNK
     Route: 065

REACTIONS (7)
  - Psychotic disorder [Recovered/Resolved]
  - Encephalopathy [Recovered/Resolved]
  - Nervous system disorder [Recovered/Resolved]
  - Confusional state [Recovered/Resolved]
  - Agitation [Recovered/Resolved]
  - Malaise [Recovered/Resolved]
  - Asthenia [Recovered/Resolved]

NARRATIVE: CASE EVENT DATE: 20140606
